FAERS Safety Report 9115244 (Version 3)
Quarter: 2013Q1

REPORT INFORMATION
  Report Type: Spontaneous
  Country: US (occurrence: US)
  Receive Date: 20130225
  Receipt Date: 20130315
  Transmission Date: 20140127
  Serious: Yes (Hospitalization, Other)
  Sender: FDA-Public Use
  Company Number: US-PFIZER INC-2013068176

PATIENT
  Age: 82 Year
  Sex: Male
  Weight: 77.1 kg

DRUGS (8)
  1. LYRICA [Suspect]
     Indication: SPINAL DISORDER
     Dosage: 75 MG, 2X/DAY
     Dates: start: 201301
  2. LYRICA [Suspect]
     Indication: HYPOAESTHESIA
     Dosage: UNK
  3. NORVASC [Suspect]
     Indication: HYPERTENSION
     Dosage: UNK
  4. PLAQUENIL [Suspect]
     Indication: RHEUMATOID ARTHRITIS
     Dosage: UNK
  5. LISINOPRIL [Concomitant]
     Indication: HYPERTENSION
     Dosage: 40 MG DAILY
  6. PREDNISONE [Concomitant]
     Indication: RHEUMATOID ARTHRITIS
     Dosage: 2.5 MG, ALTERNATE DAY
  7. METHOTREXATE [Concomitant]
     Indication: RHEUMATOID ARTHRITIS
     Dosage: UNK
  8. PAXIL [Concomitant]
     Dosage: UNK

REACTIONS (9)
  - Fall [Unknown]
  - Rib fracture [Unknown]
  - Head injury [Unknown]
  - Rash [Not Recovered/Not Resolved]
  - Eye disorder [Unknown]
  - Fungal infection [Unknown]
  - Skin reaction [Unknown]
  - Hypotension [Unknown]
  - Drug ineffective [Unknown]
